FAERS Safety Report 14431306 (Version 1)
Quarter: 2018Q1

REPORT INFORMATION
  Report Type: Spontaneous
  Country: US (occurrence: US)
  Receive Date: 20180124
  Receipt Date: 20180124
  Transmission Date: 20180509
  Serious: Yes (Hospitalization, Other)
  Sender: FDA-Public Use
  Company Number: US-PFIZER INC-2018030882

PATIENT
  Age: 72 Year
  Sex: Male
  Weight: 108.86 kg

DRUGS (1)
  1. SUTENT [Suspect]
     Active Substance: SUNITINIB MALATE
     Dosage: 50 MG, CYCLIC (50MG CAPSULE BY MOUTH FOR 28 DAYS)
     Route: 048
     Dates: start: 201706, end: 201801

REACTIONS (10)
  - Decreased appetite [Not Recovered/Not Resolved]
  - Oral pain [Unknown]
  - Somnolence [Unknown]
  - Asthenia [Unknown]
  - Yellow skin [Unknown]
  - Dysgeusia [Unknown]
  - Fatigue [Not Recovered/Not Resolved]
  - Blood pressure increased [Unknown]
  - Transient ischaemic attack [Unknown]
  - Thyroid disorder [Unknown]

NARRATIVE: CASE EVENT DATE: 201706
